FAERS Safety Report 15542468 (Version 1)
Quarter: 2018Q4

REPORT INFORMATION
  Report Type: Spontaneous
  Country: US (occurrence: US)
  Receive Date: 20181017
  Receipt Date: 20181017
  Transmission Date: 20190205
  Serious: No
  Sender: FDA-Public Use
  Company Number: None

PATIENT
  Age: 87 Year
  Sex: Male
  Weight: 84.37 kg

DRUGS (2)
  1. PROLIA [Suspect]
     Active Substance: DENOSUMAB
     Indication: BONE DENSITY ABNORMAL
     Dosage: OTHER FREQUENCY:EVERY 6 MONTHS AS ;?
     Route: 058
     Dates: start: 201803
  2. PROLIA [Suspect]
     Active Substance: DENOSUMAB
     Indication: PROSTATE CANCER
     Dosage: OTHER FREQUENCY:EVERY 6 MONTHS AS ;?
     Route: 058
     Dates: start: 201803

REACTIONS (1)
  - Viral infection [None]
